FAERS Safety Report 7926549 (Version 3)
Quarter: 2013Q1

REPORT INFORMATION
  Report Type: Spontaneous
  Country: US (occurrence: US)
  Receive Date: 20110502
  Receipt Date: 20130201
  Transmission Date: 20140127
  Serious: No
  Sender: FDA-Public Use
  Company Number: US-ASTRAZENECA-2010SE57600

PATIENT
  Age: 70 Year
  Sex: Female

DRUGS (5)
  1. NEXIUM [Suspect]
     Route: 048
  2. NEXIUM [Suspect]
     Dosage: TWICE DAILY
     Route: 048
  3. ZANTAC [Concomitant]
  4. MUCINEX [Concomitant]
  5. PROMETHAZINE [Concomitant]

REACTIONS (13)
  - Gastrooesophageal reflux disease [Unknown]
  - Blood pressure increased [Unknown]
  - Pneumonia [Unknown]
  - Middle ear effusion [Unknown]
  - Nasopharyngitis [Unknown]
  - Sinus congestion [Unknown]
  - Dyspepsia [Unknown]
  - Regurgitation [Unknown]
  - Malaise [Unknown]
  - Nausea [Unknown]
  - Intentional drug misuse [Unknown]
  - Off label use [Unknown]
  - Drug dose omission [Unknown]
